FAERS Safety Report 20441551 (Version 3)
Quarter: 2022Q1

REPORT INFORMATION
  Report Type: Report from Study
  Country: IL (occurrence: IL)
  Receive Date: 20220208
  Receipt Date: 20220215
  Transmission Date: 20220423
  Serious: Yes (Death, Hospitalization)
  Sender: FDA-Public Use
  Company Number: IL-ABBVIE-22K-082-4257661-00

PATIENT
  Sex: Male

DRUGS (2)
  1. CARBIDOPA\LEVODOPA [Suspect]
     Active Substance: CARBIDOPA\LEVODOPA
     Indication: Parkinson^s disease
     Route: 050
     Dates: start: 20170115
  2. CARBIDOPA\LEVODOPA [Suspect]
     Active Substance: CARBIDOPA\LEVODOPA
     Dosage: MD(ML)5.0, CD(ML/H) 5.7, ED(ML)4.2, NIGHT CD3.2(ML/H)?THERAPY DURATION (HRS) REMAINS AT 16
     Route: 050

REACTIONS (4)
  - Post-acute COVID-19 syndrome [Fatal]
  - SARS-CoV-2 test positive [Fatal]
  - Pyrexia [Unknown]
  - On and off phenomenon [Unknown]

NARRATIVE: CASE EVENT DATE: 20220101
